FAERS Safety Report 14829341 (Version 5)
Quarter: 2019Q1

REPORT INFORMATION
  Report Type: Spontaneous
  Country: US (occurrence: US)
  Receive Date: 20180430
  Receipt Date: 20190122
  Transmission Date: 20190417
  Serious: Yes (Hospitalization, Other)
  Sender: FDA-Public Use
  Company Number: US-ASTRAZENECA-2018SE50068

PATIENT
  Age: 513 Month
  Sex: Male
  Weight: 90.7 kg

DRUGS (58)
  1. NEXIUM [Suspect]
     Active Substance: ESOMEPRAZOLE MAGNESIUM
     Indication: GASTROOESOPHAGEAL REFLUX DISEASE
     Route: 048
     Dates: start: 2011
  2. SIMVASTATIN. [Concomitant]
     Active Substance: SIMVASTATIN
     Indication: BLOOD CHOLESTEROL
     Dates: start: 20111230
  3. LOTRIMIN [Concomitant]
     Active Substance: CLOTRIMAZOLE
  4. SPIRIVA [Concomitant]
     Active Substance: TIOTROPIUM BROMIDE MONOHYDRATE
     Indication: CHRONIC OBSTRUCTIVE PULMONARY DISEASE
     Dates: start: 20111227
  5. ZANTAC 300 [Concomitant]
  6. DIGOXIN. [Concomitant]
     Active Substance: DIGOXIN
     Dates: start: 20140325
  7. ALBUTEROL SULFATE. [Concomitant]
     Active Substance: ALBUTEROL SULFATE
     Dates: start: 20161007
  8. CALCITRIOL. [Concomitant]
     Active Substance: CALCITRIOL
  9. XARELTO [Concomitant]
     Active Substance: RIVAROXABAN
  10. NEURONTIN [Concomitant]
     Active Substance: GABAPENTIN
  11. NEXIUM [Suspect]
     Active Substance: ESOMEPRAZOLE MAGNESIUM
     Indication: GASTROOESOPHAGEAL REFLUX DISEASE
     Dosage: GENERIC
     Route: 048
     Dates: start: 20160312
  12. NYSTATIN. [Concomitant]
     Active Substance: NYSTATIN
     Indication: RASH
     Dates: start: 20120124
  13. PHENOBARBITAL. [Concomitant]
     Active Substance: PHENOBARBITAL
     Dates: start: 20111227
  14. ALBUTEROL. [Concomitant]
     Active Substance: ALBUTEROL
     Route: 055
  15. HYDROCODONE-ACETAMINOPHEN [Concomitant]
     Active Substance: ACETAMINOPHEN\HYDROCODONE
     Route: 048
  16. FLUDROCORTISONE [Concomitant]
     Active Substance: FLUDROCORTISONE
     Dates: start: 20161007
  17. MIDODRINE HYDROCHLORIDE. [Concomitant]
     Active Substance: MIDODRINE HYDROCHLORIDE
     Dates: start: 20161007
  18. FOLIC ACID. [Concomitant]
     Active Substance: FOLIC ACID
  19. ZOFRAN [Concomitant]
     Active Substance: ONDANSETRON HYDROCHLORIDE
  20. PROVENTIL [Concomitant]
     Active Substance: ALBUTEROL
  21. CLARITIN [Concomitant]
     Active Substance: LORATADINE
  22. NEXIUM [Suspect]
     Active Substance: ESOMEPRAZOLE MAGNESIUM
     Indication: GASTROOESOPHAGEAL REFLUX DISEASE
     Route: 048
     Dates: start: 200406, end: 201601
  23. LAMOTRIGINE. [Concomitant]
     Active Substance: LAMOTRIGINE
     Indication: SEIZURE
     Dates: start: 20111227
  24. SENOKOT [Concomitant]
     Active Substance: SENNOSIDES
     Indication: CONSTIPATION
     Dates: start: 201710
  25. TRIAMCINOLONE ACETONIDE. [Concomitant]
     Active Substance: TRIAMCINOLONE ACETONIDE
     Dates: start: 20161007
  26. SODIUM BICARBONATE. [Concomitant]
     Active Substance: SODIUM BICARBONATE
     Dates: start: 20150922
  27. PROAMATINE [Concomitant]
     Active Substance: MIDODRINE HYDROCHLORIDE
     Dates: start: 20170605
  28. CARAFATE [Concomitant]
     Active Substance: SUCRALFATE
  29. KEFLEX [Concomitant]
     Active Substance: CEPHALEXIN
  30. PRILOSEC [Suspect]
     Active Substance: OMEPRAZOLE MAGNESIUM
     Indication: GASTROOESOPHAGEAL REFLUX DISEASE
     Dosage: GENERIC
     Route: 065
     Dates: start: 2016
  31. PRILOSEC [Suspect]
     Active Substance: OMEPRAZOLE MAGNESIUM
     Indication: GASTROOESOPHAGEAL REFLUX DISEASE
     Route: 048
     Dates: start: 20161220
  32. SINGULAIR [Concomitant]
     Active Substance: MONTELUKAST SODIUM
     Dates: start: 20111227
  33. MAGNESIUM [Concomitant]
     Active Substance: MAGNESIUM
     Dates: start: 20150922
  34. REGLAN [Concomitant]
     Active Substance: METOCLOPRAMIDE HYDROCHLORIDE
     Dates: start: 20180316
  35. COLACE [Concomitant]
     Active Substance: DOCUSATE SODIUM
     Dates: start: 20170605
  36. PANTOPRAZOLE [Concomitant]
     Active Substance: PANTOPRAZOLE
  37. ADVAIR HFA [Concomitant]
     Active Substance: FLUTICASONE PROPIONATE\SALMETEROL XINAFOATE
     Indication: CHRONIC OBSTRUCTIVE PULMONARY DISEASE
     Dates: start: 20111227
  38. ADVAIR HFA [Concomitant]
     Active Substance: FLUTICASONE PROPIONATE\SALMETEROL XINAFOATE
     Indication: CHRONIC OBSTRUCTIVE PULMONARY DISEASE
     Dates: start: 2010
  39. WARFARIN [Concomitant]
     Active Substance: WARFARIN
     Indication: THROMBOSIS
     Route: 065
  40. TOPIRAMATE. [Concomitant]
     Active Substance: TOPIRAMATE
  41. TOBRAMYCIN. [Concomitant]
     Active Substance: TOBRAMYCIN
  42. PROMETHAZINE HYDROCHLORIDE. [Concomitant]
     Active Substance: PROMETHAZINE HYDROCHLORIDE
     Dates: start: 20161010
  43. COUMADIN [Concomitant]
     Active Substance: WARFARIN SODIUM
  44. RENVELA [Concomitant]
     Active Substance: SEVELAMER CARBONATE
  45. NORCO [Concomitant]
     Active Substance: ACETAMINOPHEN\HYDROCODONE BITARTRATE
     Dates: start: 20170823
  46. PRILOSEC OTC [Concomitant]
     Active Substance: OMEPRAZOLE MAGNESIUM
  47. GABAPENTIN. [Concomitant]
     Active Substance: GABAPENTIN
     Indication: NEUROPATHY PERIPHERAL
     Dates: start: 20111227
  48. PEPCID [Concomitant]
     Active Substance: FAMOTIDINE
  49. HYDROCODONE [Concomitant]
     Active Substance: HYDROCODONE
     Dates: start: 20111227
  50. ATORVASTATIN [Concomitant]
     Active Substance: ATORVASTATIN
     Dates: start: 20161007
  51. KEPPRA [Concomitant]
     Active Substance: LEVETIRACETAM
     Dates: start: 20150922
  52. NEXIUM [Suspect]
     Active Substance: ESOMEPRAZOLE MAGNESIUM
     Indication: GASTROOESOPHAGEAL REFLUX DISEASE
     Dosage: GENERIC
     Route: 048
     Dates: start: 2016
  53. NEXIUM [Suspect]
     Active Substance: ESOMEPRAZOLE MAGNESIUM
     Indication: GASTROOESOPHAGEAL REFLUX DISEASE
     Route: 048
     Dates: start: 20111227
  54. SPIRIVA [Concomitant]
     Active Substance: TIOTROPIUM BROMIDE MONOHYDRATE
     Indication: CHRONIC OBSTRUCTIVE PULMONARY DISEASE
     Dates: start: 2013, end: 2015
  55. VOLTAREN [Concomitant]
     Active Substance: DICLOFENAC SODIUM
  56. MGO [Concomitant]
     Active Substance: MAGNESIUM OXIDE
     Dates: start: 20161007
  57. SYMBICORT [Concomitant]
     Active Substance: BUDESONIDE\FORMOTEROL FUMARATE DIHYDRATE
     Dates: start: 20160208
  58. PHOSLO [Concomitant]
     Active Substance: CALCIUM ACETATE
     Dates: start: 20150922

REACTIONS (5)
  - Chronic kidney disease [Unknown]
  - Nephrogenic anaemia [Unknown]
  - Renal failure [Not Recovered/Not Resolved]
  - Acute kidney injury [Unknown]
  - End stage renal disease [Unknown]

NARRATIVE: CASE EVENT DATE: 201202
